FAERS Safety Report 20375890 (Version 2)
Quarter: 2022Q1

REPORT INFORMATION
  Report Type: Spontaneous
  Country: GB (occurrence: GB)
  Receive Date: 20220125
  Receipt Date: 20220216
  Transmission Date: 20220423
  Serious: Yes (Hospitalization, Other)
  Sender: FDA-Public Use
  Company Number: None

PATIENT
  Age: 78 Year
  Sex: Female
  Weight: 61.6 kg

DRUGS (16)
  1. ATORVASTATIN [Suspect]
     Active Substance: ATORVASTATIN
     Indication: Product used for unknown indication
     Dosage: 1 TO BE TAKEN EACH NIGHT, 56 TABLET
     Route: 048
     Dates: start: 20211118, end: 20211202
  2. ALENDRONIC ACID [Suspect]
     Active Substance: ALENDRONIC ACID
     Indication: Coeliac disease
     Route: 048
     Dates: start: 20200331, end: 20211004
  3. CLOPIDOGREL [Suspect]
     Active Substance: CLOPIDOGREL BISULFATE
     Indication: Product used for unknown indication
     Dosage: TAKE ONE DAILY, 56 TABLET
     Route: 048
     Dates: start: 20211118, end: 20211202
  4. MIRTAZAPINE [Suspect]
     Active Substance: MIRTAZAPINE
     Indication: Product used for unknown indication
     Dosage: 1 DOSAGE FORM, EVERY NIGHT (1 NOCTE)
     Route: 048
     Dates: start: 20201129
  5. ACETAMINOPHEN [Suspect]
     Active Substance: ACETAMINOPHEN
     Indication: Pain
     Dosage: QID (TAKE 1-2 TABLETS TO BE TAKEN FOUR TIMES DAILY ,200 TABLET)
     Dates: start: 20210927, end: 20211122
  6. RAMIPRIL [Suspect]
     Active Substance: RAMIPRIL
     Indication: Hypertension
     Dosage: TAKE ONE DAILY. THE DOSE OF THIS MEDICATION MAY NEED TO BE ALTERED IF YOU?HAVE A DIARRHOEA/VOMITING
     Route: 048
     Dates: start: 20211122, end: 20211122
  7. CALCIUM CARBONATE [Suspect]
     Active Substance: CALCIUM CARBONATE
     Dosage: 1 TO BE TAKEN TWICE DAILY, 112 TABLET
     Route: 048
     Dates: start: 20211122, end: 20211122
  8. ASPIRIN [Suspect]
     Active Substance: ASPIRIN
     Dosage: TAKE ONE DAILY, 56 TABLETS
     Route: 048
     Dates: start: 20211118, end: 20211202
  9. LANSOPRAZOLE [Suspect]
     Active Substance: LANSOPRAZOLE
     Dosage: TAKE ONE ONCE DAILY WHILST TAKING CITALOPRAM, 28 GASTRO-RESISTANT CAPSULES
     Route: 048
     Dates: start: 20211122, end: 20211122
  10. IBUPROFEN [Suspect]
     Active Substance: IBUPROFEN
     Indication: Arthralgia
     Dosage: 100 GRAM, TID (3 TIMES PER DAY)
     Dates: start: 20200721, end: 20210913
  11. CALCIUM CARBONATE\CHOLECALCIFEROL [Concomitant]
     Active Substance: CALCIUM CARBONATE\CHOLECALCIFEROL
     Indication: Blood calcium
     Dosage: UNK
     Route: 048
  12. CETIRIZINE [Concomitant]
     Active Substance: CETIRIZINE HYDROCHLORIDE
     Indication: Seasonal allergy
     Dosage: 1 DOSAGE FORM, QD (TAKE ONE DAILY)
     Route: 048
     Dates: start: 20180226, end: 20210913
  13. CITALOPRAM [Concomitant]
     Active Substance: CITALOPRAM HYDROBROMIDE
     Indication: Mood altered
     Dosage: UNK
     Route: 048
  14. LANTUS [Concomitant]
     Active Substance: INSULIN GLARGINE
     Indication: Type 2 diabetes mellitus
     Dosage: 100 INTERNATIONAL UNIT PER MILLILITRE
     Route: 048
     Dates: start: 20180226, end: 20210802
  15. ALENDRONATE SODIUM [Concomitant]
     Active Substance: ALENDRONATE SODIUM
     Indication: Blood cholesterol
     Dosage: UNK
     Route: 048
  16. SIMVASTATIN [Concomitant]
     Active Substance: SIMVASTATIN
     Indication: Blood cholesterol
     Route: 048

REACTIONS (22)
  - General physical health deterioration [Not Recovered/Not Resolved]
  - Loose tooth [Not Recovered/Not Resolved]
  - Blood calcium decreased [Not Recovered/Not Resolved]
  - Arthritis [Not Recovered/Not Resolved]
  - Constipation [Not Recovered/Not Resolved]
  - Labyrinthitis [Not Recovered/Not Resolved]
  - Nausea [Unknown]
  - Noninfective gingivitis [Unknown]
  - Tooth fracture [Not Recovered/Not Resolved]
  - Post viral fatigue syndrome [Unknown]
  - Asthenia [Unknown]
  - Malaise [Not Recovered/Not Resolved]
  - Off label use [Unknown]
  - Balance disorder [Unknown]
  - Fall [Unknown]
  - Coordination abnormal [Unknown]
  - Fatigue [Unknown]
  - Muscle twitching [Unknown]
  - Angiopathy [Unknown]
  - Mobility decreased [Not Recovered/Not Resolved]
  - Arthralgia [Unknown]
  - Osteitis [Unknown]

NARRATIVE: CASE EVENT DATE: 20210101
